FAERS Safety Report 17294433 (Version 1)
Quarter: 2020Q1

REPORT INFORMATION
  Report Type: Spontaneous
  Country: US (occurrence: US)
  Receive Date: 20200121
  Receipt Date: 20200121
  Transmission Date: 20200409
  Serious: No
  Sender: FDA-Public Use
  Company Number: US-SUN PHARMACEUTICAL INDUSTRIES LTD-2019R1-230827

PATIENT
  Sex: Female

DRUGS (6)
  1. UPTRAVI [Concomitant]
     Active Substance: SELEXIPAG
     Indication: PRODUCT USED FOR UNKNOWN INDICATION
     Dosage: 1200 MICROGRAM, BID
     Route: 065
  2. UPTRAVI [Concomitant]
     Active Substance: SELEXIPAG
     Dosage: INCREASING EVENING UPTRAVI DOSE FROM 1200MCG TO 1400MCG
     Route: 065
  3. AMBRISENTAN [Suspect]
     Active Substance: AMBRISENTAN
     Indication: PRODUCT USED FOR UNKNOWN INDICATION
     Dosage: 10 MILLIGRAM, QD
     Route: 048
     Dates: start: 20190510
  4. UPTRAVI [Concomitant]
     Active Substance: SELEXIPAG
     Dosage: INCREASING HER UPTRAVI DOSES
     Route: 065
  5. UPTRAVI [Concomitant]
     Active Substance: SELEXIPAG
     Dosage: 1400MCG DOSE BACK TO 1200 MCG
     Route: 065
  6. SILDENAFIL. [Concomitant]
     Active Substance: SILDENAFIL
     Indication: PRODUCT USED FOR UNKNOWN INDICATION
     Dosage: UNK
     Route: 065

REACTIONS (6)
  - Headache [Not Recovered/Not Resolved]
  - Myalgia [Not Recovered/Not Resolved]
  - Foreign body in respiratory tract [Unknown]
  - Bone pain [Unknown]
  - Decreased appetite [Unknown]
  - Arthralgia [Unknown]
